FAERS Safety Report 10249120 (Version 1)
Quarter: 2014Q2

REPORT INFORMATION
  Report Type: Spontaneous
  Country: US (occurrence: None)
  Receive Date: 20140619
  Receipt Date: 20140619
  Transmission Date: 20141212
  Serious: Yes (Disabling)
  Sender: FDA-Public Use
  Company Number: None

PATIENT
  Age: 18 Year
  Sex: Female
  Weight: 108.86 kg

DRUGS (1)
  1. ISOTRETINOIN [Suspect]
     Indication: ACNE
     Dosage: 1 PILL ONCE DAILY TAKEN BY MOUTH
     Route: 048

REACTIONS (13)
  - Pernicious anaemia [None]
  - Hypoaesthesia [None]
  - Headache [None]
  - Abnormal sensation in eye [None]
  - Feeling abnormal [None]
  - Visual field defect [None]
  - Nuclear magnetic resonance imaging brain abnormal [None]
  - Cerebral ischaemia [None]
  - Vitamin B12 deficiency [None]
  - Suicidal ideation [None]
  - Anxiety [None]
  - Pain [None]
  - Benign intracranial hypertension [None]
